FAERS Safety Report 11156271 (Version 1)
Quarter: 2015Q2

REPORT INFORMATION
  Report Type: Spontaneous
  Country: US (occurrence: None)
  Receive Date: 20150601
  Receipt Date: 20150601
  Transmission Date: 20150821
  Serious: No
  Sender: FDA-Public Use
  Company Number: None

PATIENT
  Age: 55 Year
  Sex: Male

DRUGS (1)
  1. ENBREL [Suspect]
     Active Substance: ETANERCEPT
     Indication: PSORIATIC ARTHROPATHY
     Route: 058
     Dates: start: 201411

REACTIONS (4)
  - Injection site pain [None]
  - Injection site swelling [None]
  - Injection site reaction [None]
  - Injection site pruritus [None]

NARRATIVE: CASE EVENT DATE: 20150515
